FAERS Safety Report 18816584 (Version 1)
Quarter: 2021Q1

REPORT INFORMATION
  Report Type: Spontaneous
  Country: US (occurrence: US)
  Receive Date: 20210201
  Receipt Date: 20210201
  Transmission Date: 20210419
  Serious: No
  Sender: FDA-Public Use
  Company Number: US-009507513-2101USA008150

PATIENT
  Age: 29 Year
  Sex: Female
  Weight: 54.43 kg

DRUGS (6)
  1. NUVARING [Suspect]
     Active Substance: ETHINYL ESTRADIOL\ETONOGESTREL
     Indication: CONTRACEPTION
     Dosage: 11 YEARS AGO
     Route: 067
     Dates: start: 2010
  2. BUTALBITAL [Concomitant]
     Active Substance: BUTALBITAL
     Dosage: UNK
  3. NUVARING [Suspect]
     Active Substance: ETHINYL ESTRADIOL\ETONOGESTREL
     Indication: CONTRACEPTION
     Dosage: ONCE EVERY 3 WEEKS
     Route: 067
     Dates: start: 20201231, end: 20210114
  4. PROVENTIL [Concomitant]
     Active Substance: ALBUTEROL
     Dosage: UNK
  5. NUVARING [Suspect]
     Active Substance: ETHINYL ESTRADIOL\ETONOGESTREL
     Indication: CONTRACEPTION
     Dosage: ONCE EVERY 3 WEEKS, 1 PV, 21 DAYS
     Route: 067
     Dates: start: 202012, end: 20201231
  6. NUVARING [Suspect]
     Active Substance: ETHINYL ESTRADIOL\ETONOGESTREL
     Indication: CONTRACEPTION
     Dosage: UNK
     Route: 067
     Dates: start: 20210116

REACTIONS (5)
  - Device expulsion [Unknown]
  - No adverse event [Unknown]
  - Device breakage [Unknown]
  - Device expulsion [Unknown]
  - Device breakage [Unknown]

NARRATIVE: CASE EVENT DATE: 20201231
